FAERS Safety Report 10063446 (Version 1)
Quarter: 2014Q1

REPORT INFORMATION
  Report Type: Spontaneous
  Country: US (occurrence: None)
  Receive Date: 20140306
  Receipt Date: 20140306
  Transmission Date: 20141002
  Serious: Yes (Other)
  Sender: FDA-Public Use
  Company Number: 2013P1021826

PATIENT
  Age: 9 Year
  Sex: Female

DRUGS (2)
  1. OXCARBAZEPINE TABLETS 150 MG [Suspect]
     Indication: PARTIAL SEIZURES
     Route: 048
     Dates: start: 2013
  2. IBUPROFEN [Concomitant]

REACTIONS (5)
  - Psychotic disorder [None]
  - Convulsion [None]
  - Mydriasis [None]
  - Confusional state [None]
  - Communication disorder [None]
